FAERS Safety Report 7576571-3 (Version None)
Quarter: 2011Q2

REPORT INFORMATION
  Report Type: 
  Country: None (occurrence: None)
  Receive Date: 20110628
  Receipt Date: 20110614
  Transmission Date: 20111010
  Serious: Yes (Other)
  Sender: FDA-Public Use
  Company Number: VE-RANBAXY-2011RR-44854

PATIENT
  Age: 73 Year
  Sex: Male

DRUGS (3)
  1. ASPIRIN [Concomitant]
     Indication: HYPERTENSION
  2. ENALAPRIL MALEATE [Suspect]
     Indication: HYPERTENSION
     Dosage: UNK
  3. DILTIAZEM [Concomitant]
     Indication: HYPERTENSION

REACTIONS (2)
  - RASH PRURITIC [None]
  - PHOTOSENSITIVITY ALLERGIC REACTION [None]
